FAERS Safety Report 11496317 (Version 1)
Quarter: 2015Q3

REPORT INFORMATION
  Report Type: Spontaneous
  Country: GB (occurrence: GB)
  Receive Date: 20150911
  Receipt Date: 20150911
  Transmission Date: 20151125
  Serious: Yes (Death, Other)
  Sender: FDA-Public Use
  Company Number: GB-GLAXOSMITHKLINE-GB2014GSK008724

PATIENT
  Sex: Male
  Weight: 63 kg

DRUGS (3)
  1. ACIC [Suspect]
     Active Substance: ACYCLOVIR
     Dosage: 1 G, TID
     Route: 042
     Dates: start: 20141006, end: 201410
  2. ACIC [Suspect]
     Active Substance: ACYCLOVIR
     Dosage: 10 MG/KG, TID
     Route: 042
     Dates: start: 20141006, end: 201410
  3. ACIC [Suspect]
     Active Substance: ACYCLOVIR
     Dosage: 10 MG/KG, BID
     Route: 042
     Dates: start: 2014, end: 20141002

REACTIONS (3)
  - Coma [Not Recovered/Not Resolved]
  - Neurotoxicity [Fatal]
  - Overdose [Unknown]

NARRATIVE: CASE EVENT DATE: 201410
